FAERS Safety Report 9439734 (Version 3)
Quarter: 2013Q3

REPORT INFORMATION
  Report Type: Spontaneous
  Country: US (occurrence: US)
  Receive Date: 20130805
  Receipt Date: 20130829
  Transmission Date: 20140515
  Serious: No
  Sender: FDA-Public Use
  Company Number: US-009507513-1308USA000076

PATIENT
  Age: 49 Year
  Sex: Male

DRUGS (6)
  1. VICTRELIS [Suspect]
     Indication: HEPATITIS C
     Dosage: 800 MG, BID
     Route: 048
     Dates: start: 2013
  2. PEGINTRON [Suspect]
     Dosage: 120 MICROGRAM, QW, REDIPEN
     Dates: start: 2013
  3. PEGINTRON [Suspect]
     Dosage: 120 MICROGRAM, QW, REDIPEN
     Dates: start: 20130719
  4. RIBAPAK [Suspect]
     Dosage: UNK
     Dates: start: 2013
  5. CITALOPRAM HYDROBROMIDE [Concomitant]
  6. ALPRAZOLAM [Concomitant]

REACTIONS (6)
  - Skin exfoliation [Unknown]
  - Oral mucosal exfoliation [Unknown]
  - Anxiety [Unknown]
  - Influenza like illness [Unknown]
  - Malaise [Recovered/Resolved]
  - Chills [Unknown]
